FAERS Safety Report 10157278 (Version 1)
Quarter: 2014Q2

REPORT INFORMATION
  Report Type: Spontaneous
  Country: US (occurrence: US)
  Receive Date: 20140507
  Receipt Date: 20140507
  Transmission Date: 20141212
  Serious: Yes (Hospitalization, Other)
  Sender: FDA-Public Use
  Company Number: US-009507513-1405USA001146

PATIENT
  Age: 58 Year
  Sex: Male

DRUGS (5)
  1. ISENTRESS [Suspect]
     Indication: HIV INFECTION
     Dosage: 400MG, 1 STANDARD PACKAGE BOTTLE OF 6, 400 MG, BID
     Route: 048
     Dates: start: 2010
  2. VANCOMYCIN [Suspect]
     Dosage: UNK
     Dates: start: 201306
  3. NORVIR [Concomitant]
  4. DARUNAVIR [Concomitant]
  5. LAMIVUDINE [Concomitant]

REACTIONS (2)
  - Renal failure acute [Recovering/Resolving]
  - Dialysis [Unknown]
